FAERS Safety Report 4560414-6 (Version None)
Quarter: 2005Q1

REPORT INFORMATION
  Report Type: 
  Country: None (occurrence: None)
  Receive Date: 20050125
  Receipt Date: 20050110
  Transmission Date: 20050727
  Serious: Yes (Congenital Anomaly)
  Sender: FDA-Public Use
  Company Number: GB-MERCK-0501GBR00109

PATIENT
  Sex: Male

DRUGS (8)
  1. DECADRON [Suspect]
     Dates: start: 19790101
  2. SPIRONOLACTONE [Suspect]
     Dates: start: 19790101
  3. PENICILLAMINE [Suspect]
     Dates: start: 19790101
  4. FUROSEMIDE [Suspect]
     Dates: start: 19790101
  5. POTASSIUM CHLORIDE [Suspect]
     Dates: start: 19790101
  6. ACETAMINOPHEN [Suspect]
     Dates: start: 19790101
  7. ASPIRIN [Suspect]
     Dates: start: 19790101
  8. ASCORBIC ACID AND FERROUS SULFATE [Suspect]
     Dates: start: 19790101

REACTIONS (3)
  - ADRENOGENITAL SYNDROME [None]
  - CRYPTORCHISM [None]
  - DRUG EXPOSURE DURING PREGNANCY [None]
